FAERS Safety Report 9027156 (Version 13)
Quarter: 2015Q4

REPORT INFORMATION
  Report Type: Spontaneous
  Country: US (occurrence: US)
  Receive Date: 20130123
  Receipt Date: 20151229
  Transmission Date: 20160305
  Serious: Yes (Hospitalization, Other)
  Sender: FDA-Public Use
  Company Number: US-GLAXOSMITHKLINE-A0998240A

PATIENT
  Sex: Female

DRUGS (16)
  1. FLOLAN [Suspect]
     Active Substance: EPOPROSTENOL SODIUM
     Dosage: UNK
     Dates: start: 19970822
  2. FLOLAN [Suspect]
     Active Substance: EPOPROSTENOL SODIUM
     Dosage: 28NG/KG/MIN, CONCENTRATION 60,000 NG/ML, PUMP RATE 75 ML/DAY, VIAL STRENGTH 1.5 MG, CO
  3. FLOLAN [Suspect]
     Active Substance: EPOPROSTENOL SODIUM
     Dosage: UNK
     Dates: start: 19970822
  4. FLOLAN [Suspect]
     Active Substance: EPOPROSTENOL SODIUM
     Dosage: UNK, CO
     Route: 042
  5. COUMADIN [Concomitant]
     Active Substance: WARFARIN SODIUM
  6. FLOLAN [Suspect]
     Active Substance: EPOPROSTENOL SODIUM
     Dosage: 28 DF, CO
     Route: 042
  7. FLOLAN [Suspect]
     Active Substance: EPOPROSTENOL SODIUM
     Dosage: 28 DF, CO
     Route: 042
     Dates: start: 19991012
  8. WARFARIN [Concomitant]
     Active Substance: WARFARIN
  9. FLOLAN [Suspect]
     Active Substance: EPOPROSTENOL SODIUM
     Indication: PULMONARY ARTERIAL HYPERTENSION
     Dosage: CONCENTRATION IS 60,000 NG/ML, 1.5 MG VIAL, 28 NG/KG/MIN CONTINUOUSLY, VIAL STRENGTH 1.5 MG
     Route: 042
     Dates: start: 19970822
  10. FLOLAN [Suspect]
     Active Substance: EPOPROSTENOL SODIUM
     Dosage: UNK
     Dates: start: 19970822
  11. FLOLAN [Suspect]
     Active Substance: EPOPROSTENOL SODIUM
     Dosage: UNK
     Dates: start: 19970822
  12. FLOLAN [Suspect]
     Active Substance: EPOPROSTENOL SODIUM
     Dosage: UNK, CO
     Route: 042
  13. FLOLAN [Suspect]
     Active Substance: EPOPROSTENOL SODIUM
     Dosage: 28NG/KG/MIN, CONCENTRATION 60,000 NG/ML, PUMP RATE 75 ML/DAY, VIAL STRENGTH 1.5 MG, CO
  14. FLOLAN [Suspect]
     Active Substance: EPOPROSTENOL SODIUM
     Dosage: UNK
     Dates: start: 19991012
  15. REVATIO [Concomitant]
     Active Substance: SILDENAFIL CITRATE
  16. LETAIRIS [Concomitant]
     Active Substance: AMBRISENTAN

REACTIONS (18)
  - Central venous catheterisation [Recovered/Resolved]
  - Catheter site infection [Unknown]
  - Medical device complication [Recovered/Resolved]
  - Device related infection [Not Recovered/Not Resolved]
  - Upper respiratory tract infection [Recovered/Resolved]
  - Sinusitis [Unknown]
  - Bronchitis [Unknown]
  - Fall [Unknown]
  - Back injury [Unknown]
  - Central venous catheter removal [Recovered/Resolved]
  - International normalised ratio abnormal [Not Recovered/Not Resolved]
  - Catheter site haemorrhage [Unknown]
  - Device leakage [Recovered/Resolved]
  - Diarrhoea [Recovered/Resolved]
  - Device occlusion [Recovered/Resolved]
  - Muscle spasms [Unknown]
  - Small intestinal bacterial overgrowth [Unknown]
  - Urticaria [Recovered/Resolved]
